FAERS Safety Report 8857237 (Version 4)
Quarter: 2013Q1

REPORT INFORMATION
  Report Type: Spontaneous
  Country: US (occurrence: US)
  Receive Date: 20121024
  Receipt Date: 20130227
  Transmission Date: 20140127
  Serious: Yes (Other)
  Sender: FDA-Public Use
  Company Number: US-ASTRAZENECA-2012SE80376

PATIENT
  Age: 46 Year
  Sex: Male

DRUGS (3)
  1. TOPROL XL [Suspect]
     Route: 048
  2. TOPROL XL [Suspect]
     Dosage: HALF TABLET
     Route: 048
  3. TOPROL XL [Suspect]
     Route: 048

REACTIONS (4)
  - Cardiac failure congestive [Unknown]
  - Palpitations [Unknown]
  - Intentional drug misuse [Unknown]
  - Drug dose omission [Unknown]
